FAERS Safety Report 6480096-6 (Version None)
Quarter: 2009Q4

REPORT INFORMATION
  Report Type: 
  Country: None (occurrence: None)
  Receive Date: 20091208
  Receipt Date: 20091130
  Transmission Date: 20100525
  Serious: Yes (Other)
  Sender: FDA-Public Use
  Company Number: PHHY2009FR52764

PATIENT
  Sex: Male

DRUGS (1)
  1. RASILEZ [Suspect]
     Dosage: 300 MG/DAY
     Route: 048
     Dates: start: 20090701, end: 20091117

REACTIONS (4)
  - BLISTER [None]
  - CONCOMITANT DISEASE AGGRAVATED [None]
  - DERMATITIS BULLOUS [None]
  - SKIN LESION [None]
